FAERS Safety Report 17362128 (Version 1)
Quarter: 2020Q1

REPORT INFORMATION
  Report Type: Spontaneous
  Country: LV (occurrence: LV)
  Receive Date: 20200203
  Receipt Date: 20200203
  Transmission Date: 20200409
  Serious: Yes (Hospitalization)
  Sender: FDA-Public Use
  Company Number: LV-PFIZER INC-2020022373

PATIENT
  Age: 80 Year
  Sex: Female

DRUGS (5)
  1. MEDROL [Suspect]
     Active Substance: METHYLPREDNISOLONE
     Dosage: 12 MG, DAILY
     Route: 048
     Dates: start: 20191227, end: 20191229
  2. MEDROL [Suspect]
     Active Substance: METHYLPREDNISOLONE
     Dosage: 4 MG, DAILY
     Route: 048
     Dates: start: 20200103, end: 20200107
  3. MEDROL [Suspect]
     Active Substance: METHYLPREDNISOLONE
     Indication: ASTHMA
     Dosage: 16 MG, UNK
     Route: 048
     Dates: start: 20191222, end: 20191223
  4. MEDROL [Suspect]
     Active Substance: METHYLPREDNISOLONE
     Dosage: 16 MG, DAILY
     Route: 048
     Dates: start: 20191224, end: 20191226
  5. MEDROL [Suspect]
     Active Substance: METHYLPREDNISOLONE
     Dosage: 8 MG, DAILY
     Route: 048
     Dates: start: 20191230, end: 20200102

REACTIONS (5)
  - Decreased appetite [Unknown]
  - Oral pain [Unknown]
  - Liver disorder [Unknown]
  - Back pain [Unknown]
  - Herpes zoster [Unknown]
